FAERS Safety Report 5986067-8 (Version None)
Quarter: 2008Q4

REPORT INFORMATION
  Report Type: 
  Country: None (occurrence: None)
  Receive Date: 20081205
  Receipt Date: 20081205
  Transmission Date: 20090506
  Serious: Yes (Hospitalization)
  Sender: FDA-Public Use
  Company Number: None

PATIENT
  Age: 57 Year
  Sex: Male
  Weight: 91 kg

DRUGS (10)
  1. TEMODAR [Suspect]
     Indication: GLIOBLASTOMA
     Dosage: 440MG PO X 5 DAYS Q28
     Route: 048
     Dates: start: 20080917, end: 20081019
  2. TOPOTECAN 1.25MG/M2 ON DAYS 2 - 6 OF 28 DAY CYCLE [Suspect]
     Indication: GLIOBLASTOMA
     Dosage: 2.75 MG PO X 5 DAYS Q28
     Dates: start: 20080917, end: 20081020
  3. SYNTHROID [Concomitant]
  4. BACTRIM [Concomitant]
  5. PROTONIX [Concomitant]
  6. KEPPRA [Concomitant]
  7. EFFEXOR [Concomitant]
  8. DECADRON [Concomitant]
  9. LITHOBID [Concomitant]
  10. ZYPREXA [Concomitant]

REACTIONS (9)
  - COMPLEX PARTIAL SEIZURES [None]
  - CONFUSIONAL STATE [None]
  - DYSPNOEA EXERTIONAL [None]
  - HYPERGLYCAEMIA [None]
  - HYPERSOMNIA [None]
  - LETHARGY [None]
  - MENTAL STATUS CHANGES [None]
  - NEUTROPHIL COUNT DECREASED [None]
  - PULMONARY EMBOLISM [None]
